FAERS Safety Report 23539306 (Version 1)
Quarter: 2024Q1

REPORT INFORMATION
  Report Type: Spontaneous
  Country: JP (occurrence: JP)
  Receive Date: 20240219
  Receipt Date: 20240219
  Transmission Date: 20240410
  Serious: Yes (Hospitalization)
  Sender: FDA-Public Use
  Company Number: JP-BAYER-2024A025378

PATIENT
  Age: 67 Year
  Sex: Male

DRUGS (2)
  1. IOPROMIDE [Suspect]
     Active Substance: IOPROMIDE
     Indication: Computerised tomogram
     Dosage: ONCE
     Dates: start: 20231128, end: 20231128
  2. IOPROMIDE [Suspect]
     Active Substance: IOPROMIDE
     Indication: Inguinal hernia

REACTIONS (2)
  - Kounis syndrome [Recovered/Resolved]
  - Syncope [None]

NARRATIVE: CASE EVENT DATE: 20231128
